FAERS Safety Report 24363041 (Version 1)
Quarter: 2024Q3

REPORT INFORMATION
  Report Type: Report from Study
  Country: US (occurrence: US)
  Receive Date: 20240925
  Receipt Date: 20240925
  Transmission Date: 20241016
  Serious: No
  Sender: SUNOVION
  Company Number: US-SUMITOMO PHARMA SWITZERLAND GMBH-2024SPA002371

PATIENT

DRUGS (2)
  1. ORGOVYX [Suspect]
     Active Substance: RELUGOLIX
     Indication: Prostate cancer
     Dosage: 360 MG, SINGLE
     Route: 048
     Dates: start: 20240215, end: 20240215
  2. ORGOVYX [Suspect]
     Active Substance: RELUGOLIX
     Dosage: 120 MG, QD
     Route: 048
     Dates: start: 20240216

REACTIONS (9)
  - Dental care [Unknown]
  - Sciatica [Unknown]
  - Cataract operation [Unknown]
  - Carpal tunnel syndrome [Unknown]
  - Thermal burn [Unknown]
  - Disease progression [Unknown]
  - Prostatic specific antigen increased [Unknown]
  - Pain in extremity [Unknown]
  - Neck pain [Unknown]
